FAERS Safety Report 23604374 (Version 2)
Quarter: 2024Q2

REPORT INFORMATION
  Report Type: Report from Study
  Country: CO (occurrence: CO)
  Receive Date: 20240307
  Receipt Date: 20240418
  Transmission Date: 20240716
  Serious: Yes (Other)
  Sender: FDA-Public Use
  Company Number: CO-HBP-2024CO030486

PATIENT
  Age: 82 Year
  Sex: Female
  Weight: 70 kg

DRUGS (2)
  1. MECHLORETHAMINE HYDROCHLORIDE [Suspect]
     Active Substance: MECHLORETHAMINE HYDROCHLORIDE
     Indication: Cutaneous T-cell lymphoma
     Dosage: ONE APPLICATION EVERY 24 HOURS
     Route: 061
     Dates: start: 20220209
  2. BETAMETHASONE DIPROPIONATE [Concomitant]
     Active Substance: BETAMETHASONE DIPROPIONATE
     Indication: Cutaneous T-cell lymphoma
     Dosage: ONE APPLICATION EVERY 24 HOURS, QD
     Route: 061

REACTIONS (5)
  - Disease progression [Not Recovered/Not Resolved]
  - Cutaneous T-cell lymphoma stage III [Not Recovered/Not Resolved]
  - Skin lesion [Unknown]
  - Treatment noncompliance [Unknown]
  - Drug ineffective [Unknown]
